FAERS Safety Report 13738562 (Version 1)
Quarter: 2017Q3

REPORT INFORMATION
  Report Type: Report from Study
  Country: US (occurrence: US)
  Receive Date: 20170710
  Receipt Date: 20170710
  Transmission Date: 20171127
  Serious: No
  Sender: FDA-Public Use
  Company Number: US-SAOL THERAPEUTICS-2016SAO00964

PATIENT
  Age: 56 Year
  Sex: Female

DRUGS (4)
  1. COMPOUNDED BACLOFEN [Suspect]
     Active Substance: BACLOFEN
     Indication: LUMBAR RADICULOPATHY
  2. COMPOUNDED BACLOFEN [Suspect]
     Active Substance: BACLOFEN
     Indication: PAIN
     Dosage: 1217.4 ?G, \DAY
     Route: 037
     Dates: start: 20160107
  3. DILAUDID [Suspect]
     Active Substance: HYDROMORPHONE HYDROCHLORIDE
     Dosage: 3.043 MG, \DAY
     Route: 037
     Dates: start: 20160107
  4. BUPIVICAINE [Suspect]
     Active Substance: BUPIVACAINE
     Dosage: 6.087 MG, \DAY
     Dates: start: 20160107

REACTIONS (2)
  - Medical device site pain [Recovered/Resolved]
  - Off label use [Unknown]

NARRATIVE: CASE EVENT DATE: 20160309
